FAERS Safety Report 9467610 (Version 1)
Quarter: 2013Q3

REPORT INFORMATION
  Report Type: Spontaneous
  Country: US (occurrence: None)
  Receive Date: 20130819
  Receipt Date: 20130819
  Transmission Date: 20140515
  Serious: No
  Sender: FDA-Public Use
  Company Number: None

PATIENT
  Age: 43 Year
  Sex: Female
  Weight: 68.04 kg

DRUGS (1)
  1. ESCITALOPRAM [Suspect]
     Dosage: 1 TABLET  ONCE DAILY  TAKEN BY MOUTH
     Route: 048
     Dates: start: 20130626, end: 20130814

REACTIONS (5)
  - Anxiety [None]
  - Irritability [None]
  - Palpitations [None]
  - Choking sensation [None]
  - Dyspnoea [None]
